FAERS Safety Report 7389589-0 (Version None)
Quarter: 2011Q2

REPORT INFORMATION
  Report Type: 
  Country: None (occurrence: None)
  Receive Date: 20110401
  Receipt Date: 20110323
  Transmission Date: 20111010
  Serious: Yes (Hospitalization)
  Sender: FDA-Public Use
  Company Number: PHHY2011SE23720

PATIENT
  Age: 45 Year
  Sex: Female

DRUGS (3)
  1. LEPONEX [Suspect]
     Indication: PSYCHOTIC DISORDER
     Dosage: 900 MG, QD
     Dates: start: 20101101
  2. LEPONEX [Suspect]
     Indication: PARANOIA
  3. LERGIGAN [Concomitant]

REACTIONS (4)
  - DECUBITUS ULCER [None]
  - ANXIETY [None]
  - AKATHISIA [None]
  - WEIGHT DECREASED [None]
